FAERS Safety Report 7521681-X (Version None)
Quarter: 2011Q2

REPORT INFORMATION
  Report Type: 
  Country: None (occurrence: None)
  Receive Date: 20110524
  Receipt Date: 20110509
  Transmission Date: 20111010
  Serious: Yes (Death, Other)
  Sender: FDA-Public Use
  Company Number: ALA_02263_2011

PATIENT
  Sex: Female
  Weight: 79.3795 kg

DRUGS (127)
  1. ATENOLOL [Concomitant]
  2. MULTI-VITAMIN [Concomitant]
  3. ACETAMINOPHEN [Concomitant]
  4. DULCOLAX [Concomitant]
  5. FERATAB [Concomitant]
  6. ZITHROMAX [Concomitant]
  7. NICODERM CQ [Concomitant]
  8. AMBIEN [Concomitant]
  9. PREMPHASE (PREMARIN;CYCRIN 14/14) [Concomitant]
  10. LOTRIMIN [Concomitant]
  11. MEVACOR [Concomitant]
  12. SENNA PLUS [Concomitant]
  13. CELEBREX [Concomitant]
  14. FOSAMAX [Concomitant]
  15. SINGULAIR [Concomitant]
  16. VIOXX [Concomitant]
  17. DARVON [Concomitant]
  18. REGLAN [Suspect]
     Indication: GASTROINTESTINAL DISORDER
     Dosage: 10 MG INTRAVENOUS (NOT OTHERWISE SPECIFIED)
     Route: 042
     Dates: start: 19990211, end: 19990211
  19. REGLAN [Suspect]
     Indication: GASTROOESOPHAGEAL REFLUX DISEASE
     Dosage: 10 MG INTRAVENOUS (NOT OTHERWISE SPECIFIED)
     Route: 042
     Dates: start: 19990211, end: 19990211
  20. REGLAN [Suspect]
     Indication: IMPAIRED GASTRIC EMPTYING
     Dosage: 10 MG INTRAVENOUS (NOT OTHERWISE SPECIFIED)
     Route: 042
     Dates: start: 19990211, end: 19990211
  21. REGLAN [Suspect]
     Indication: DYSPEPSIA
     Dosage: 10 MG INTRAVENOUS (NOT OTHERWISE SPECIFIED)
     Route: 042
     Dates: start: 19990211, end: 19990211
  22. LANTUS [Concomitant]
  23. PROMETHAZINE [Concomitant]
  24. HYDROCHLOROTHIAZIDE [Concomitant]
  25. VALTREX [Concomitant]
  26. CLARITHROMYCIN [Concomitant]
  27. ALBUMIN (HUMAN) [Concomitant]
  28. EPINEPHRINE [Concomitant]
  29. DEXAMETHASONE [Concomitant]
  30. CODEINE W/GUIFENESIN [Concomitant]
  31. NAPROXEN [Concomitant]
  32. RESTORIL [Concomitant]
  33. VICODIN HP [Concomitant]
  34. GLUCOPHAGE [Concomitant]
  35. MEDENT LD [Concomitant]
  36. EFFEXOR XR [Concomitant]
  37. CLONIDINE [Concomitant]
  38. SPIRIVA [Concomitant]
  39. SOLU-MEDROL [Concomitant]
  40. RANITIDINE [Concomitant]
  41. HYDROXYZINE [Concomitant]
  42. LEVALBUTEROL HCL [Concomitant]
  43. ZESTRIL [Concomitant]
  44. DEMEROL [Concomitant]
  45. DIALVITE [Concomitant]
  46. ELIDEL [Concomitant]
  47. TEMAZEPAM [Concomitant]
  48. NEXIUM [Concomitant]
  49. CLINDAMYCIN [Concomitant]
  50. KLONOPIN [Concomitant]
  51. PEPCID [Concomitant]
  52. BUPIVACAINE HCL [Concomitant]
  53. ISOSORBIDE MONONITRATE [Concomitant]
  54. MIDAZOLAM HCL [Concomitant]
  55. PROPOFOL [Concomitant]
  56. BACTROBAN [Concomitant]
  57. LABETALOL HCL [Concomitant]
  58. TAGAMET [Concomitant]
  59. CEPHULAC [Concomitant]
  60. PANTOPRAZOLE [Concomitant]
  61. NASONEX [Concomitant]
  62. ZOLOFT [Concomitant]
  63. LASIX [Concomitant]
  64. XANAX [Concomitant]
  65. REQUIP [Concomitant]
  66. EPOGEN [Concomitant]
  67. ADVAIR DISKUS 100/50 [Concomitant]
  68. ACTOS [Concomitant]
  69. CALCITRIOL [Concomitant]
  70. METHOCARBAMOL [Concomitant]
  71. ALTACE [Concomitant]
  72. LIDODERM [Concomitant]
  73. HUMALIN 70/30 [Concomitant]
  74. DIFLUCAN [Concomitant]
  75. TEQUIN [Concomitant]
  76. NASACORT [Concomitant]
  77. CEFEPIME [Concomitant]
  78. GENTAMYCIN SULFATE [Concomitant]
  79. ALBUTEROL SULFATE AUTOHALER [Concomitant]
  80. ZEMPLAR [Concomitant]
  81. MORPHINE SULFATE [Concomitant]
  82. CYMBALTA [Concomitant]
  83. DOXYCYCLINE [Concomitant]
  84. LORAZEPAM [Concomitant]
  85. LISINOPRIL [Concomitant]
  86. FLEXERIL [Concomitant]
  87. BACTRIM DS [Concomitant]
  88. ZYRTEC [Concomitant]
  89. VENOFER [Concomitant]
  90. NOVOLOG [Concomitant]
  91. HYDROCODONE BITARTRATE [Concomitant]
  92. HEPARIN [Concomitant]
  93. FLAGYL [Concomitant]
  94. ZOFRAN [Concomitant]
  95. FENTANYL CITRATE [Concomitant]
  96. LEVOTHYROXINE SODIUM [Concomitant]
  97. IPRATROPIUM BROMIDE [Concomitant]
  98. NALOXONE [Concomitant]
  99. MAGNESIUM OXIDE [Concomitant]
  100. OXYCODONE AND ACETAMINOPHEN [Concomitant]
  101. PREDNISONE [Concomitant]
  102. LEVAQUIN [Concomitant]
  103. LOVENOX [Concomitant]
  104. ELAVIL [Concomitant]
  105. RHINOCORT [Concomitant]
  106. BIDEX [Concomitant]
  107. MIDRIN [Concomitant]
  108. REGLAN [Suspect]
     Dosage: 5-10 MG, ORAL
     Route: 048
     Dates: start: 20021101, end: 20091201
  109. VANCOMYCIN [Concomitant]
  110. HUMALOG [Concomitant]
  111. NORVASC [Concomitant]
  112. LORCET-HD [Concomitant]
  113. PROTONOX [Concomitant]
  114. RENAGEL [Concomitant]
  115. CEFAZOLIN [Concomitant]
  116. HUMULIN R [Concomitant]
  117. NEPHROCAPS [Concomitant]
  118. IRON SUCROSE [Concomitant]
  119. HYDROXYZINE [Concomitant]
  120. MEDROL [Concomitant]
  121. KLOR-CON [Concomitant]
  122. SPIRONOLACTONE [Concomitant]
  123. ERY-TAB [Concomitant]
  124. DYAZIDE [Concomitant]
  125. PRILOSEC [Concomitant]
  126. POLYSACCHARIDE-IRON COMPLEX [Concomitant]
  127. APIDRA [Concomitant]

REACTIONS (36)
  - RIB FRACTURE [None]
  - ABNORMAL BEHAVIOUR [None]
  - TREMOR [None]
  - TREATMENT NONCOMPLIANCE [None]
  - PYREXIA [None]
  - HYPERGLYCAEMIA [None]
  - ENCEPHALOPATHY [None]
  - STREPTOCOCCAL SEPSIS [None]
  - ENDOCARDITIS [None]
  - CARDIAC DISORDER [None]
  - STAPHYLOCOCCAL BACTERAEMIA [None]
  - SYSTEMIC CANDIDA [None]
  - BALANCE DISORDER [None]
  - RENAL FAILURE CHRONIC [None]
  - HYPOGLYCAEMIA [None]
  - CHRONIC OBSTRUCTIVE PULMONARY DISEASE [None]
  - PULMONARY OEDEMA [None]
  - HYPERTENSIVE CARDIOMYOPATHY [None]
  - TARDIVE DYSKINESIA [None]
  - DIABETES MELLITUS INADEQUATE CONTROL [None]
  - DRUG WITHDRAWAL SYNDROME [None]
  - DYSARTHRIA [None]
  - NAUSEA [None]
  - FLUID OVERLOAD [None]
  - EXTRAPYRAMIDAL DISORDER [None]
  - NERVOUS SYSTEM DISORDER [None]
  - FALL [None]
  - VOMITING [None]
  - CONDITION AGGRAVATED [None]
  - DEVICE RELATED SEPSIS [None]
  - LOSS OF CONSCIOUSNESS [None]
  - LETHARGY [None]
  - DIALYSIS [None]
  - WEANING FAILURE [None]
  - RESPIRATORY FAILURE [None]
  - DYSTONIA [None]
